FAERS Safety Report 18306438 (Version 1)
Quarter: 2020Q3

REPORT INFORMATION
  Report Type: Spontaneous
  Country: US (occurrence: US)
  Receive Date: 20200924
  Receipt Date: 20200924
  Transmission Date: 20201103
  Serious: Yes (Death)
  Sender: FDA-Public Use
  Company Number: None

PATIENT
  Age: 76 Year
  Sex: Female

DRUGS (8)
  1. TACROLIMUS. [Suspect]
     Active Substance: TACROLIMUS
     Indication: LUNG TRANSPLANT
     Dosage: ?          OTHER FREQUENCY:PLACE 1 C UNT QAM;?
     Route: 048
     Dates: start: 20181017
  2. DOMPERIDONE [Concomitant]
     Active Substance: DOMPERIDONE
  3. ASPIRIN. [Concomitant]
     Active Substance: ASPIRIN
  4. IMODIUM [Concomitant]
     Active Substance: LOPERAMIDE HYDROCHLORIDE
  5. ONE A DAYS WOMENS [Concomitant]
  6. VITAMIN D 1,000 [Concomitant]
  7. TYLENOL PM [Concomitant]
     Active Substance: ACETAMINOPHEN\DIPHENHYDRAMINE
  8. CALCIUM [Concomitant]
     Active Substance: CALCIUM

REACTIONS (1)
  - COVID-19 [None]

NARRATIVE: CASE EVENT DATE: 20200917
